FAERS Safety Report 11643417 (Version 3)
Quarter: 2015Q4

REPORT INFORMATION
  Report Type: Spontaneous
  Country: CA (occurrence: CA)
  Receive Date: 20151020
  Receipt Date: 20151020
  Transmission Date: 20160304
  Serious: Yes (Hospitalization, Other)
  Sender: FDA-Public Use
  Company Number: BTG00398

PATIENT

DRUGS (1)
  1. CROFAB [Suspect]
     Active Substance: CROTALIDAE POLYVALENT IMMUNE FAB (OVINE)
     Indication: VENOM POISONING
     Dosage: 6 VIALS TOTAL

REACTIONS (4)
  - Drug ineffective [Recovering/Resolving]
  - Coagulopathy [Recovering/Resolving]
  - Peripheral swelling [Recovering/Resolving]
  - Off label use [Recovering/Resolving]
